FAERS Safety Report 4385683-7 (Version None)
Quarter: 2004Q2

REPORT INFORMATION
  Report Type: 
  Country: None (occurrence: None)
  Receive Date: 20040622
  Receipt Date: 20040607
  Transmission Date: 20050107
  Serious: Yes (Hospitalization)
  Sender: FDA-Public Use
  Company Number: A0513731A

PATIENT
  Age: 48 Year
  Sex: Female

DRUGS (5)
  1. NICODERM CQ [Suspect]
     Indication: EX-SMOKER
     Dosage: 14 MG/PER DAY/TRANSDERMAL
     Route: 062
     Dates: start: 20030101
  2. MULTI-VITAMIN [Concomitant]
  3. RALOXIFENE HCL [Concomitant]
  4. ERYTHROMYCIN [Concomitant]
  5. CALCIUM SALT [Concomitant]

REACTIONS (4)
  - ASTHENIA [None]
  - DIZZINESS [None]
  - FATIGUE [None]
  - VIRAL INFECTION [None]
